FAERS Safety Report 10215964 (Version 2)
Quarter: 2014Q2

REPORT INFORMATION
  Report Type: Spontaneous
  Country: US (occurrence: US)
  Receive Date: 20140604
  Receipt Date: 20140610
  Transmission Date: 20141212
  Serious: No
  Sender: FDA-Public Use
  Company Number: US-009507513-1406USA000041

PATIENT
  Age: 69 Year
  Sex: Female
  Weight: 52.15 kg

DRUGS (10)
  1. MIRALAX [Suspect]
     Indication: GASTROINTESTINAL MOTILITY DISORDER
     Dosage: 17 G, QD
     Route: 048
     Dates: start: 201405, end: 20140521
  2. NORVASC [Concomitant]
     Indication: BLOOD PRESSURE
     Dosage: UNK, UNKNOWN
  3. CYMBALTA [Concomitant]
     Indication: CYSTITIS INTERSTITIAL
     Dosage: UNK, UNKNOWN
  4. ELMIRON [Concomitant]
     Indication: CYSTITIS INTERSTITIAL
     Dosage: UNK, UNKNOWN
  5. URELLE [Concomitant]
     Indication: CYSTITIS INTERSTITIAL
     Dosage: UNK, UNKNOWN
  6. CRANBERRY [Concomitant]
     Indication: CYSTITIS INTERSTITIAL
     Dosage: UNK, UNKNOWN
  7. MYRBETRIQ [Concomitant]
     Indication: CYSTITIS INTERSTITIAL
     Dosage: UNK, UNKNOWN
  8. CYANOCOBALAMIN [Concomitant]
     Indication: PRODUCT USED FOR UNKNOWN INDICATION
     Dosage: UNK, UNKNOWN
  9. FOLIC ACID [Concomitant]
     Indication: PRODUCT USED FOR UNKNOWN INDICATION
     Dosage: UNK, UNKNOWN
  10. IRON (UNSPECIFIED) [Concomitant]
     Indication: PRODUCT USED FOR UNKNOWN INDICATION
     Dosage: UNK, UNKNOWN

REACTIONS (3)
  - Blister [Recovered/Resolved]
  - Urticaria [Unknown]
  - Product quality issue [Unknown]
